FAERS Safety Report 9705717 (Version 1)
Quarter: 2013Q4

REPORT INFORMATION
  Report Type: Spontaneous
  Country: US (occurrence: US)
  Receive Date: 20131122
  Receipt Date: 20131122
  Transmission Date: 20140711
  Serious: No
  Sender: FDA-Public Use
  Company Number: US-GILEAD-2008-0017745

PATIENT
  Sex: Female
  Weight: 106.14 kg

DRUGS (15)
  1. LETAIRIS [Suspect]
     Indication: PULMONARY ARTERIAL HYPERTENSION
     Route: 048
     Dates: start: 20080728
  2. FUROSEMIDE [Concomitant]
     Dosage: AS DIRECTED
     Route: 048
  3. LIPITOR [Concomitant]
     Dosage: AS DIRECTED
     Route: 048
  4. ASPIRIN [Concomitant]
     Dosage: AS DIRECTED
     Route: 048
  5. FLUOXETINE [Concomitant]
     Dosage: AS DIRECTED
     Route: 048
  6. VERAPAMIL [Concomitant]
     Dosage: AS DIRECTED
     Route: 048
  7. ISOSORBIDE DN [Concomitant]
     Dosage: AS DIRECTED
     Route: 048
  8. AMITRIPTYLINE [Concomitant]
     Dosage: AS DIRECTED
     Route: 048
  9. LYRICA [Concomitant]
     Dosage: AS DIRECTED
     Route: 048
  10. LISINOPRIL [Concomitant]
     Dosage: AS DIRECTED
     Route: 048
  11. DITROPAN XL [Concomitant]
     Dosage: AS DIRECTED
     Route: 048
  12. PRILOSEC [Concomitant]
     Dosage: AS DIRECTED
     Route: 048
  13. LEVOTHYROXINE [Concomitant]
     Dosage: AS DIRECTED
     Route: 048
  14. POTASSIUM CHLORIDE [Concomitant]
     Dosage: AS DIRECTED
     Route: 048
  15. MULTIVITAMIN [Concomitant]
     Dosage: AS DIRECTED
     Route: 048

REACTIONS (1)
  - Swelling [None]
